FAERS Safety Report 4834617-7 (Version None)
Quarter: 2005Q4

REPORT INFORMATION
  Report Type: 
  Country: None (occurrence: None)
  Receive Date: 20051122
  Receipt Date: 20051031
  Transmission Date: 20060501
  Serious: Yes (Other)
  Sender: FDA-Public Use
  Company Number: US-GLAXOSMITHKLINE-A0580297A

PATIENT
  Age: 10 Year
  Sex: Female
  Weight: 35 kg

DRUGS (5)
  1. ZOFRAN [Suspect]
     Indication: VOMITING
     Dosage: 4MG SINGLE DOSE
     Route: 042
     Dates: start: 20050917, end: 20050917
  2. COMPAZINE [Concomitant]
  3. PHENERGAN [Concomitant]
     Indication: VOMITING
     Route: 065
  4. BELLADONNA [Concomitant]
     Indication: DRUG USE FOR UNKNOWN INDICATION
     Route: 048
  5. ROCEPHIN [Concomitant]
     Indication: URINARY TRACT INFECTION
     Route: 042
     Dates: start: 20050917, end: 20050917

REACTIONS (3)
  - EXTRAPYRAMIDAL DISORDER [None]
  - MUSCLE TIGHTNESS [None]
  - SPEECH DISORDER [None]
